FAERS Safety Report 7333907-6 (Version None)
Quarter: 2011Q1

REPORT INFORMATION
  Report Type: 
  Country: None (occurrence: None)
  Receive Date: 20110307
  Receipt Date: 20110224
  Transmission Date: 20110831
  Serious: Yes (Death, Hospitalization)
  Sender: FDA-Public Use
  Company Number: US-BIOGENIDEC-2010BI033395

PATIENT
  Age: 65 Year
  Sex: Female
  Weight: 81 kg

DRUGS (2)
  1. AVONEX [Suspect]
     Route: 030
     Dates: start: 19950101, end: 20030101
  2. AVONEX [Suspect]
     Indication: MULTIPLE SCLEROSIS
     Route: 030
     Dates: start: 20030101

REACTIONS (1)
  - MULTIPLE SCLEROSIS [None]
